FAERS Safety Report 23118689 (Version 1)
Quarter: 2023Q4

REPORT INFORMATION
  Report Type: Spontaneous
  Country: US (occurrence: US)
  Receive Date: 20231028
  Receipt Date: 20231028
  Transmission Date: 20240110
  Serious: No
  Sender: FDA-Public Use
  Company Number: US-ABBVIE-5467145

PATIENT
  Sex: Female

DRUGS (1)
  1. HUMIRA [Suspect]
     Active Substance: ADALIMUMAB
     Indication: Exposure via body fluid
     Route: 050

REACTIONS (4)
  - Maternal exposure during pregnancy [Unknown]
  - Injury associated with device [Unknown]
  - Accidental exposure to product [Unknown]
  - Paternal exposure during pregnancy [Unknown]

NARRATIVE: CASE EVENT DATE: 20231020
